FAERS Safety Report 13134044 (Version 2)
Quarter: 2017Q1

REPORT INFORMATION
  Report Type: Spontaneous
  Country: US (occurrence: US)
  Receive Date: 20170120
  Receipt Date: 20170126
  Transmission Date: 20170428
  Serious: Yes (Hospitalization, Other)
  Sender: FDA-Public Use
  Company Number: US-HORIZON-DUE-0009-2017

PATIENT
  Age: 54 Year
  Sex: Female

DRUGS (1)
  1. DUEXIS [Suspect]
     Active Substance: FAMOTIDINE\IBUPROFEN
     Indication: ARTHRITIS
     Dosage: 1 TABLET BID, THEN 1 TABLET EVERY OTHER DAY
     Dates: start: 2015

REACTIONS (9)
  - Abdominal pain upper [Unknown]
  - Fall [Unknown]
  - Pelvic pain [Unknown]
  - Pain in extremity [Unknown]
  - Drug dose omission [Unknown]
  - Ulcer [Unknown]
  - Off label use [Unknown]
  - Intentional product misuse [Unknown]
  - Pain [Unknown]

NARRATIVE: CASE EVENT DATE: 201701
